FAERS Safety Report 5444829-X (Version None)
Quarter: 2007Q3

REPORT INFORMATION
  Report Type: 
  Country: None (occurrence: None)
  Receive Date: 20070906
  Receipt Date: 20070427
  Transmission Date: 20080115
  Serious: No
  Sender: FDA-Public Use
  Company Number: A0645064A

PATIENT
  Age: 52 Year
  Sex: Female

DRUGS (2)
  1. REQUIP [Suspect]
     Indication: RESTLESS LEGS SYNDROME
     Dosage: 1.25MG PER DAY
     Route: 048
     Dates: start: 20070222
  2. HERBAL MEDICATION [Concomitant]

REACTIONS (6)
  - ABDOMINAL PAIN [None]
  - BREAST ENLARGEMENT [None]
  - BREAST PAIN [None]
  - DIARRHOEA [None]
  - MUSCLE SPASMS [None]
  - WEIGHT DECREASED [None]
